FAERS Safety Report 7569350-4 (Version None)
Quarter: 2011Q2

REPORT INFORMATION
  Report Type: 
  Country: None (occurrence: None)
  Receive Date: 20110623
  Receipt Date: 20110617
  Transmission Date: 20111010
  Serious: No
  Sender: FDA-Public Use
  Company Number: GB-PFIZER INC-2011073813

PATIENT
  Age: 49 Year
  Sex: Male

DRUGS (1)
  1. EFFEXOR XR [Suspect]
     Dosage: 150 MG, UNK

REACTIONS (1)
  - NO ADVERSE EVENT [None]
